FAERS Safety Report 15181019 (Version 1)
Quarter: 2018Q3

REPORT INFORMATION
  Report Type: Spontaneous
  Country: US (occurrence: US)
  Receive Date: 20180623
  Receipt Date: 20180623
  Transmission Date: 20181010
  Serious: Yes (Death, Hospitalization)
  Sender: FDA-Public Use
  Company Number: None

PATIENT
  Age: 9 Year
  Sex: Male
  Weight: 30.6 kg

DRUGS (3)
  1. G?CSF (FILGRASTIM, AMGEN) [Suspect]
     Active Substance: FILGRASTIM
     Dates: end: 20100524
  2. CYTARABINE. [Suspect]
     Active Substance: CYTARABINE
     Dates: end: 20100516
  3. PEG?L?ASPARAGINASE (K?H) [Suspect]
     Active Substance: PEGASPARGASE
     Dates: end: 20100516

REACTIONS (12)
  - Pallor [None]
  - Bladder hydrodistension [None]
  - Pulmonary oedema [None]
  - Ejection fraction decreased [None]
  - Mental impairment [None]
  - Escherichia infection [None]
  - Seizure [None]
  - Back pain [None]
  - Blood pressure decreased [None]
  - Acidosis [None]
  - Abdominal pain upper [None]
  - Somnolence [None]

NARRATIVE: CASE EVENT DATE: 20100525
